FAERS Safety Report 12853673 (Version 2)
Quarter: 2016Q4

REPORT INFORMATION
  Report Type: Spontaneous
  Country: US (occurrence: US)
  Receive Date: 20161017
  Receipt Date: 20161019
  Transmission Date: 20170207
  Serious: Yes (Hospitalization, Other)
  Sender: FDA-Public Use
  Company Number: US-RECKITT BENCKISER HEALTHCARE INT LIMITED-RB-91482-2016

PATIENT
  Age: 18 Year
  Sex: Male

DRUGS (1)
  1. MUCINEX DM MAXIMUM STRENGTH [Suspect]
     Active Substance: DEXTROMETHORPHAN HYDROBROMIDE\GUAIFENESIN
     Indication: DRUG ABUSE
     Dosage: UNK, SINGLE, TOOK 16 TABLETS OR MORE AT ONCE
     Route: 065
     Dates: start: 20161011

REACTIONS (4)
  - Drug abuse [Unknown]
  - Dysarthria [Unknown]
  - Gait disturbance [Unknown]
  - Overdose [Unknown]

NARRATIVE: CASE EVENT DATE: 20161011
